FAERS Safety Report 6313638-1 (Version None)
Quarter: 2009Q3

REPORT INFORMATION
  Report Type: 
  Country: None (occurrence: None)
  Receive Date: 20090817
  Receipt Date: 20090817
  Transmission Date: 20100115
  Serious: No
  Sender: FDA-Public Use
  Company Number: None

PATIENT
  Age: 55 Year
  Sex: Male
  Weight: 96 kg

DRUGS (1)
  1. VARENICLINE [Suspect]
     Dosage: 0.5MG BID PO
     Route: 048
     Dates: start: 20090602, end: 20090731

REACTIONS (1)
  - OESOPHAGEAL PAIN [None]
